FAERS Safety Report 8573310-4 (Version None)
Quarter: 2012Q3

REPORT INFORMATION
  Report Type: 
  Country: None (occurrence: None)
  Receive Date: 20120806
  Receipt Date: 20120727
  Transmission Date: 20120928
  Serious: Yes (Hospitalization)
  Sender: FDA-Public Use
  Company Number: FR-EISAI INC-E3810-05734-SPO-FR

PATIENT
  Age: 73 Year
  Sex: Male

DRUGS (2)
  1. RABEPRAZOLE SODIUM [Suspect]
     Dosage: UNKNOWN
     Route: 048
     Dates: start: 20120620, end: 20120625
  2. FELDENE [Suspect]
     Indication: SCIATICA
     Route: 048
     Dates: start: 20120620

REACTIONS (3)
  - FACE OEDEMA [None]
  - GENERALISED OEDEMA [None]
  - GENERALISED ERYTHEMA [None]
